FAERS Safety Report 7128329-7 (Version None)
Quarter: 2010Q4

REPORT INFORMATION
  Report Type: 
  Country: None (occurrence: None)
  Receive Date: 20101112
  Receipt Date: 20101028
  Transmission Date: 20110411
  Serious: Yes (Other)
  Sender: FDA-Public Use
  Company Number: 012430

PATIENT
  Sex: Female

DRUGS (1)
  1. CIMZIA [Suspect]
     Indication: CROHN'S DISEASE
     Dosage: (SUBCUTANEOUS)
     Route: 058
     Dates: start: 20091016

REACTIONS (6)
  - ABSCESS INTESTINAL [None]
  - COLITIS [None]
  - DRUG INEFFECTIVE [None]
  - FURUNCLE [None]
  - PSEUDOPOLYPOSIS [None]
  - URINARY TRACT INFECTION [None]
